FAERS Safety Report 9501849 (Version 1)
Quarter: 2013Q1

REPORT INFORMATION
  Report Type: Spontaneous
  Country: US (occurrence: None)
  Receive Date: 20130107
  Receipt Date: 20130107
  Transmission Date: 20140127
  Serious: No
  Sender: FDA-Public Use
  Company Number: PHEH2012US018287

PATIENT
  Age: 61 Year
  Sex: Male
  Weight: 104.3 kg

DRUGS (16)
  1. GILENYA (FTY) CAPSULE, 0.5 MG [Suspect]
  2. WATER (WATER) [Concomitant]
  3. VITAMIN D (ERGOCALCIFEROL) [Concomitant]
  4. OMEPRAZOLE (OMEPRAZOLE) [Concomitant]
  5. AMPYRA (FAMPRIDINE) [Concomitant]
  6. AMANTADINE (AMANTADINE) [Concomitant]
  7. GABAPENTIN (GABAPENTIN) [Concomitant]
  8. HYDROCODONE W/APAP (HYDROCODONE, PARACETAMOL) [Concomitant]
  9. TIZANIDINE (TIZANIDINE) [Concomitant]
  10. VENLAFAXINE (VENLAFAXINE) [Concomitant]
  11. FINASTERIDE (FINASTERIDE) [Concomitant]
  12. TERAZOSIN (TERAZOSIN) [Concomitant]
  13. NUVIGIL (ARMODAFINIL) [Concomitant]
  14. MULTIVITAMINS (ASCORBIC ACID, ERGOCALCIFEOL, FOLIC ACID, NICOTINAMIDE, PANTHENOL, RETINOL, RIBOFLAVIN, THIAMINE HYDROCHLORIDE) [Concomitant]
  15. FISH OIL (FISH OIL) [Concomitant]
  16. VITAMIN B12 (CYANOCOBALAMIN) [Concomitant]

REACTIONS (3)
  - Vitreous floaters [None]
  - Joint swelling [None]
  - Muscular weakness [None]
